FAERS Safety Report 8394772 (Version 2)
Quarter: 2012Q4

REPORT INFORMATION
  Report Type: 
  Country: US (occurrence: US)
  Receive Date: 20120207
  Receipt Date: 20120913
  Transmission Date: 20130627
  Serious: Yes (Hospitalization)
  Sender: FDA-Public Use
  Company Number: US-BAYER-2012-012034

PATIENT
  Age: 19 Year
  Sex: Female
  Weight: 68.03 kg

DRUGS (15)
  1. YASMIN [Suspect]
     Indication: CONTRACEPTION
     Dosage: UNK
     Dates: start: 200503, end: 200604
  2. YASMIN [Suspect]
     Indication: ACNE
  3. RITALIN [Concomitant]
     Indication: ATTENTION DEFICIT/HYPERACTIVITY DISORDER
     Dosage: 10 mg, TID
     Route: 048
     Dates: start: 1997
  4. METHYLIN [Concomitant]
     Indication: ATTENTION DEFICIT/HYPERACTIVITY DISORDER
     Dosage: 10 mg, TID
     Route: 048
     Dates: start: 1997
  5. MAXALT [Concomitant]
     Indication: MIGRAINE
     Dosage: UNK UNK, PRN
     Dates: start: 2000
  6. PROZAC [Concomitant]
     Indication: DEPRESSION
     Dosage: UNK
     Dates: start: 2001
  7. TRIAMCINOLONE [Concomitant]
     Indication: RASH
     Dosage: 1 %, UNK
     Route: 061
  8. ZYRTEC [Concomitant]
     Indication: URTICARIA
     Dosage: 10 mg, UNK
     Route: 048
  9. AMOXICILLIN [Concomitant]
     Indication: ACUTE SINUSITIS
     Dosage: 500 mg, UNK
     Route: 048
  10. WELLBUTRIN XL [Concomitant]
     Dosage: 300 mg, UNK
  11. PENICILLIN V POTASSIUM [Concomitant]
     Indication: PHARYNGITIS STREPTOCOCCAL
     Dosage: 500 mg, BID
     Route: 048
  12. HYDROXYZINE [Concomitant]
     Dosage: 10 mg, HS
     Route: 048
  13. NAPROXEN [Concomitant]
     Dosage: 500 mg, PRN
     Route: 048
  14. HYDROCODONE W/ACETAMINOPHEN [Concomitant]
     Dosage: 5-500 mg/as needed
     Route: 048
  15. DIFFERIN [Concomitant]
     Indication: ACNE
     Dosage: 0.1 %, UNK
     Route: 061

REACTIONS (14)
  - Pulmonary embolism [Recovered/Resolved]
  - Deep vein thrombosis [None]
  - Injury [Recovered/Resolved]
  - Depression [None]
  - Pain [Recovered/Resolved]
  - Anxiety [None]
  - Anhedonia [None]
  - Psychological trauma [None]
  - Dyspnoea [Recovered/Resolved]
  - Oedema peripheral [None]
  - Pain in extremity [None]
  - Peripheral vascular disorder [None]
  - Contusion [None]
  - Loss of consciousness [Recovered/Resolved]
